FAERS Safety Report 7230994-0 (Version None)
Quarter: 2011Q1

REPORT INFORMATION
  Report Type: 
  Country: None (occurrence: None)
  Receive Date: 20110107
  Receipt Date: 20101227
  Transmission Date: 20110831
  Serious: Yes (Hospitalization)
  Sender: FDA-Public Use
  Company Number: 2010MA005492

PATIENT
  Sex: Male

DRUGS (2)
  1. FEVERALL [Suspect]
     Indication: PRODUCT USED FOR UNKNOWN INDICATION
  2. NIMESULIDE (NIMESULIDE) [Suspect]
     Indication: PRODUCT USED FOR UNKNOWN INDICATION

REACTIONS (1)
  - LIVER DISORDER [None]
